FAERS Safety Report 7316411-0 (Version None)
Quarter: 2011Q1

REPORT INFORMATION
  Report Type: 
  Country: None (occurrence: None)
  Receive Date: 20110225
  Receipt Date: 20110223
  Transmission Date: 20110831
  Serious: Yes (Hospitalization)
  Sender: FDA-Public Use
  Company Number: DE-MERCK-1102DEU00120

PATIENT
  Age: 55 Year
  Sex: Male

DRUGS (2)
  1. TETRAZEPAM [Concomitant]
     Route: 065
  2. JANUMET [Suspect]
     Indication: DIABETES MELLITUS
     Route: 048
     Dates: start: 20101001

REACTIONS (2)
  - HEADACHE [None]
  - CERVICOBRACHIAL SYNDROME [None]
